FAERS Safety Report 5357451-0 (Version None)
Quarter: 2007Q2

REPORT INFORMATION
  Report Type: 
  Country: None (occurrence: None)
  Receive Date: 20070530
  Receipt Date: 20061004
  Transmission Date: 20071010
  Serious: Yes (Other)
  Sender: FDA-Public Use
  Company Number: US200511001581

PATIENT
  Age: 39 Year
  Sex: Female
  Weight: 93.4 kg

DRUGS (8)
  1. ZYPREXA [Suspect]
     Indication: MAJOR DEPRESSION
     Dosage: 10 MG, 2/D
     Dates: start: 20030201
  2. ZYPREXA [Suspect]
     Dosage: 10 MG, EVENING
     Dates: start: 20051006
  3. HALDOL SOLUTAB [Concomitant]
  4. BENZTROPINE MESYLATE [Concomitant]
  5. PAROXETINE [Concomitant]
  6. METHYLPREDNISOLONE [Concomitant]
  7. METROGEL-VAGINAL (CARBOMER, EDETIC ACID, METRONIDAZOLE, PARAHYDROXYBEN [Concomitant]
  8. COLACE (DOCUSATE SODIUM) [Concomitant]

REACTIONS (5)
  - BONE PAIN [None]
  - DIABETES MELLITUS NON-INSULIN-DEPENDENT [None]
  - HYPOAESTHESIA [None]
  - URTICARIA [None]
  - WEIGHT INCREASED [None]
